FAERS Safety Report 15668932 (Version 1)
Quarter: 2018Q4

REPORT INFORMATION
  Report Type: Spontaneous
  Country: JP (occurrence: JP)
  Receive Date: 20181129
  Receipt Date: 20181129
  Transmission Date: 20190205
  Serious: Yes (Death)
  Sender: FDA-Public Use
  Company Number: JP-TEVA-2018-JP-006411J

PATIENT
  Age: 103 Year
  Sex: Female

DRUGS (1)
  1. LEVOFLOXACIN TABLET 500MG TEVA [Suspect]
     Active Substance: LEVOFLOXACIN
     Indication: PRODUCT USED FOR UNKNOWN INDICATION
     Route: 065
     Dates: start: 201708, end: 201708

REACTIONS (1)
  - Anaphylactic shock [Fatal]
